FAERS Safety Report 18326859 (Version 1)
Quarter: 2020Q3

REPORT INFORMATION
  Report Type: Spontaneous
  Country: PL (occurrence: PL)
  Receive Date: 20200929
  Receipt Date: 20200929
  Transmission Date: 20201103
  Serious: Yes (Life-Threatening)
  Sender: FDA-Public Use
  Company Number: NVSC2020PL263537

PATIENT
  Age: 78 Year
  Sex: Female
  Weight: 56 kg

DRUGS (4)
  1. SUVARDIO [Suspect]
     Active Substance: ROSUVASTATIN CALCIUM
     Indication: HYPERLIPIDAEMIA
     Dosage: 1 DF
     Route: 048
     Dates: start: 2012
  2. KLACID [Suspect]
     Active Substance: CLARITHROMYCIN
     Indication: PNEUMONIA
     Dosage: 2 DF, Q12H
     Route: 048
     Dates: start: 20180323, end: 20180325
  3. LACIPIL [Concomitant]
     Active Substance: LACIDIPINE
     Indication: ESSENTIAL HYPERTENSION
     Dosage: 1 DF
     Route: 048
  4. DIURESIN SR [Suspect]
     Active Substance: INDAPAMIDE
     Indication: ESSENTIAL HYPERTENSION
     Dosage: 1 DF
     Route: 048
     Dates: end: 201804

REACTIONS (2)
  - Hyponatraemia [Recovered/Resolved]
  - Hypokalaemia [Recovered/Resolved]

NARRATIVE: CASE EVENT DATE: 20180325
